FAERS Safety Report 8268951-8 (Version None)
Quarter: 2012Q2

REPORT INFORMATION
  Report Type: 
  Country: None (occurrence: None)
  Receive Date: 20120409
  Receipt Date: 20120329
  Transmission Date: 20120825
  Serious: Yes (Other)
  Sender: FDA-Public Use
  Company Number: US-ASTRAZENECA-2012SE21077

PATIENT
  Age: 55 Year
  Sex: Female
  Weight: 97.1 kg

DRUGS (49)
  1. SEROQUEL XR [Suspect]
     Route: 048
  2. ROXICODONE [Concomitant]
  3. HYDROXYZINE HCL [Concomitant]
     Dosage: 25 MG 3X AS NEEDED
  4. SEROQUEL XR [Suspect]
     Route: 048
  5. SEROQUEL XR [Suspect]
     Route: 048
  6. ESGIC-PLUS [Concomitant]
     Dosage: PRN
  7. BEPREDE [Concomitant]
     Dosage: 1 DROP EACH EYE BID
  8. VIMOVO [Suspect]
     Route: 048
  9. SEROQUEL XR [Suspect]
     Indication: MIGRAINE
     Route: 048
     Dates: start: 20000101
  10. SEROQUEL XR [Suspect]
     Route: 048
  11. SEROQUEL XR [Suspect]
     Route: 048
  12. BENADRYL [Concomitant]
     Dosage: 2 DF EVERY 4-6 HOURS AS REQUIRED
  13. COMPAZINE [Concomitant]
     Dosage: 10 MG FOUR TIMES A DAY AS NEEDED
  14. ZOFRAN [Concomitant]
     Indication: MIGRAINE
     Dosage: 4 TO 6 HOURS AS NEEDED
  15. FOLIC ACID [Concomitant]
  16. PRODRIN [Concomitant]
     Indication: HEADACHE
     Dosage: 2 TABLETS ON THE ONSET OF HEADACHE THEN 1 EVERY HOUR UP TO MAX  OF 5 TAB DAILY
  17. SEROQUEL XR [Suspect]
     Indication: DEPRESSION
     Route: 048
     Dates: start: 20000101
  18. SEROQUEL XR [Suspect]
     Route: 048
  19. SEROQUEL XR [Suspect]
     Route: 048
  20. CRESTOR [Suspect]
     Route: 048
  21. VITAMIN D [Concomitant]
     Dosage: DAILY
  22. PREDNISONE [Concomitant]
  23. XYZAL [Concomitant]
     Indication: MULTIPLE ALLERGIES
  24. LASIX [Concomitant]
  25. SEROQUEL XR [Suspect]
     Indication: ANXIETY
     Route: 048
     Dates: start: 20000101
  26. SEROQUEL XR [Suspect]
     Route: 048
  27. SEROQUEL XR [Suspect]
     Route: 048
  28. SONATA [Concomitant]
     Indication: SLEEP DISORDER
  29. METHOTREXATE [Concomitant]
     Route: 065
  30. AMITIZA [Concomitant]
  31. SEROQUEL XR [Suspect]
     Route: 048
  32. OMNARIS [Concomitant]
     Dosage: 1 SPRAY PER NOSTRIL DAILY
     Route: 045
  33. DEXILANT [Concomitant]
  34. ESTRADIOL [Concomitant]
  35. SUMAVEL DOSEPRO [Concomitant]
     Indication: MIGRAINE
     Dosage: 1 INJECTION AT ONSET OF MIGRAINE AND THE SECOND INJECTION 1-2 HOURS AS NEEDED
     Route: 065
  36. SUMATRIPTAN [Concomitant]
     Indication: MIGRAINE
     Dosage: 150 MG THE ONSET OF MIGRAINEAND I TABLET UP AM OF 2 FOR 24 HOURS AS NEEDED
  37. SUMATRIPTAN [Concomitant]
     Indication: HEADACHE
     Dosage: 150 MG THE ONSET OF MIGRAINEAND I TABLET UP AM OF 2 FOR 24 HOURS AS NEEDED
  38. SEROQUEL XR [Suspect]
     Route: 048
  39. TESSALON [Concomitant]
     Dosage: PRN
  40. CYMBALTA [Concomitant]
  41. REMICADE [Concomitant]
     Dosage: 750 MG EVERY 6 WEEKS
     Route: 042
  42. TREXIMET [Concomitant]
     Indication: MIGRAINE
     Dosage: 1 AT ONSET THE MIGRAIN  AND  A MAX IF 2 IN 24 HOURS AS NEEDED
  43. LISINOPRIL [Suspect]
     Route: 048
  44. TOPROL-XL [Suspect]
     Route: 048
  45. SEROQUEL XR [Suspect]
     Indication: SLEEP DISORDER
     Route: 048
     Dates: start: 20000101
  46. SEROQUEL XR [Suspect]
     Route: 048
  47. CELEXA [Concomitant]
  48. PEPSID [Concomitant]
  49. TOPAMAX [Concomitant]
     Dosage: 200 IN THE MORNING 200 MG AT NOON AND 300 MG AT NIGHT

REACTIONS (6)
  - DRUG INEFFECTIVE [None]
  - THERAPEUTIC RESPONSE UNEXPECTED [None]
  - OFF LABEL USE [None]
  - SOMNOLENCE [None]
  - ASTHENIA [None]
  - FOOT FRACTURE [None]
